FAERS Safety Report 8991225 (Version 1)
Quarter: 2012Q4

REPORT INFORMATION
  Report Type: Spontaneous
  Country: US (occurrence: None)
  Receive Date: 20121220
  Receipt Date: 20121220
  Transmission Date: 20130627
  Serious: Yes (Hospitalization)
  Sender: FDA-Public Use
  Company Number: ACO_22740_2010

PATIENT
  Age: 48 Year
  Sex: Female
  Weight: 58.5 kg

DRUGS (9)
  1. AMPYRA [Suspect]
     Indication: MULTIPLE SCLEROSIS
     Dosage: 10 mg, bid, Oral
     Route: 048
     Dates: start: 20100323, end: 2010
  2. AMPYRA [Suspect]
     Indication: MUSCULAR WEAKNESS
     Dosage: 10 mg, bid, Oral
     Route: 048
     Dates: start: 20100323, end: 2010
  3. AMPYRA [Suspect]
     Indication: MULTIPLE SCLEROSIS
     Dates: start: 2010, end: 2010
  4. AMPYRA [Suspect]
     Indication: MUSCULAR WEAKNESS
     Dates: start: 2010, end: 2010
  5. CYMBALTA (DULOXETINE HYDROCHLORIDE) [Concomitant]
  6. SOMA (CARISOPRODOL) [Concomitant]
  7. COPAXONE (GLATIRAMER ACETATE) [Concomitant]
  8. NEURONTIN (GABAPENTIN) [Concomitant]
  9. ACYCLOVIR (ACICLOVIR) (ACICLOVIR) [Concomitant]

REACTIONS (4)
  - Vertigo [None]
  - Ear infection [None]
  - Balance disorder [None]
  - Inappropriate schedule of drug administration [None]
